FAERS Safety Report 23328721 (Version 2)
Quarter: 2024Q1

REPORT INFORMATION
  Report Type: Spontaneous
  Country: BR (occurrence: BR)
  Receive Date: 20231221
  Receipt Date: 20240101
  Transmission Date: 20240410
  Serious: Yes (Other)
  Sender: FDA-Public Use
  Company Number: BR-BAXTER-2023BAX036888

PATIENT
  Age: 35 Year
  Sex: Female
  Weight: 59 kg

DRUGS (2)
  1. IRON [Suspect]
     Active Substance: IRON
     Indication: Iron deficiency
     Dosage: 2 AMPOULES DIUTED IN 500 ML (MILLILITRE) OF 0.9% SALINE SOLUTION AND ADMINISTRATED VIA INTRAVENOUS I
     Route: 042
     Dates: start: 20231117, end: 20231117
  2. SODIUM CHLORIDE [Suspect]
     Active Substance: SODIUM CHLORIDE
     Indication: Medication dilution
     Dosage: 500 ML (MILLILITRE) OF 0.9% SALINE SOLUTION USED TO DILUTE 2 AMPOULES OF SUCROFER AND ADMINISTRATED
     Route: 042
     Dates: start: 20231117, end: 20231117

REACTIONS (7)
  - Gait disturbance [Unknown]
  - Skin plaque [Unknown]
  - Vomiting [Unknown]
  - Oedema peripheral [Unknown]
  - Nausea [Unknown]
  - Hypotension [Unknown]
  - Urticaria [Unknown]

NARRATIVE: CASE EVENT DATE: 20231117
